FAERS Safety Report 11225133 (Version 3)
Quarter: 2015Q3

REPORT INFORMATION
  Report Type: Spontaneous
  Country: US (occurrence: None)
  Receive Date: 20150625
  Receipt Date: 20150720
  Transmission Date: 20151125
  Serious: Yes (Other)
  Sender: FDA-Public Use
  Company Number: ADR-2015-01185

PATIENT
  Age: 56 Year
  Sex: Female

DRUGS (4)
  1. FENTANYL INTRATHECAL [Suspect]
     Active Substance: FENTANYL
  2. BACLOFEN INTRATHECAL [Suspect]
     Active Substance: BACLOFEN
  3. HYDROMORPHONE INTRATHECAL [Suspect]
     Active Substance: HYDROMORPHONE
  4. CLONIDINE. [Suspect]
     Active Substance: CLONIDINE

REACTIONS (15)
  - Irritability [None]
  - Weight increased [None]
  - Sleep disorder [None]
  - Hunger [None]
  - Temperature intolerance [None]
  - Pain [None]
  - Flushing [None]
  - Nausea [None]
  - Swelling [None]
  - Night sweats [None]
  - Feeling abnormal [None]
  - Decreased interest [None]
  - Sedation [None]
  - Hyperhidrosis [None]
  - Memory impairment [None]

NARRATIVE: CASE EVENT DATE: 20141001
